FAERS Safety Report 9667668 (Version 1)
Quarter: 2013Q4

REPORT INFORMATION
  Report Type: Spontaneous
  Country: GB (occurrence: GB)
  Receive Date: 20131104
  Receipt Date: 20131104
  Transmission Date: 20140711
  Serious: Yes (Hospitalization)
  Sender: FDA-Public Use
  Company Number: GB-PFIZER INC-2013310053

PATIENT
  Age: 35 Year
  Sex: Male
  Weight: 75 kg

DRUGS (6)
  1. CHAMPIX [Suspect]
     Indication: SMOKING CESSATION THERAPY
     Dosage: 1 MG, 2X/DAY
     Route: 048
     Dates: start: 20130611, end: 20130804
  2. DIHYDROCODEINE [Concomitant]
     Dosage: UNK
  3. TEGRETOL [Concomitant]
     Dosage: UNK
  4. TEGRETOL RETARD [Concomitant]
     Dosage: UNK
  5. DIAZEPAM [Concomitant]
     Dosage: UNK
  6. CLONAZEPAM [Concomitant]
     Dosage: UNK

REACTIONS (2)
  - Grand mal convulsion [Recovered/Resolved]
  - Condition aggravated [Unknown]
